FAERS Safety Report 6402640-7 (Version None)
Quarter: 2009Q4

REPORT INFORMATION
  Report Type: 
  Country: None (occurrence: None)
  Receive Date: 20091009
  Receipt Date: 20090930
  Transmission Date: 20100525
  Serious: Yes (Life-Threatening, Hospitalization, Other)
  Sender: FDA-Public Use
  Company Number: ADR34902009

PATIENT
  Age: 87 Year
  Sex: Female

DRUGS (7)
  1. CIPROFLOXACIN [Suspect]
     Dosage: 1 G ORAL
     Route: 048
     Dates: start: 20070223, end: 20070228
  2. AMLODIPINE [Concomitant]
  3. ATENOLOL [Concomitant]
  4. CODEINE [Concomitant]
  5. HYDROCORTISONE [Concomitant]
  6. METYRAPONE [Concomitant]
  7. TRIMETHOPRIM [Concomitant]

REACTIONS (1)
  - MYELODYSPLASTIC SYNDROME [None]
